FAERS Safety Report 16276579 (Version 7)
Quarter: 2020Q2

REPORT INFORMATION
  Report Type: Spontaneous
  Country: FR (occurrence: FR)
  Receive Date: 20190506
  Receipt Date: 20200528
  Transmission Date: 20200713
  Serious: Yes (Death, Hospitalization)
  Sender: FDA-Public Use
  Company Number: FR-PFIZER INC-2019188366

PATIENT
  Age: 61 Year
  Sex: Female
  Weight: 77 kg

DRUGS (3)
  1. ZOPICLONE [Suspect]
     Active Substance: ZOPICLONE
     Dosage: UNK, (CHRONIC TREATMENT)
     Route: 048
  2. PREGABALIN. [Suspect]
     Active Substance: PREGABALIN
     Dosage: UNK, (CHRONIC TREATMENT)
     Route: 048
  3. IVABRADINE [Suspect]
     Active Substance: IVABRADINE
     Dosage: UNK, (CHRONIC TREATMENT, ^3 TO 4 BOXES OF 56 TABLETS^ LEADING TO AN ESTIMATION OF 840 TO 1680 MG)
     Route: 048

REACTIONS (2)
  - Overdose [Fatal]
  - Toxicity to various agents [Fatal]
